FAERS Safety Report 9477218 (Version 1)
Quarter: 2013Q3

REPORT INFORMATION
  Report Type: Spontaneous
  Country: GB (occurrence: GB)
  Receive Date: 20130826
  Receipt Date: 20130826
  Transmission Date: 20140515
  Serious: Yes (Hospitalization)
  Sender: FDA-Public Use
  Company Number: GB-MYLANLABS-2013S1018220

PATIENT
  Age: 35 Year
  Sex: Female

DRUGS (2)
  1. ASPIRIN [Suspect]
     Route: 065
  2. CLOPIDOGREL [Suspect]
     Route: 065

REACTIONS (2)
  - Epistaxis [Recovered/Resolved]
  - Platelet dysfunction [Recovering/Resolving]
